FAERS Safety Report 21440001 (Version 1)
Quarter: 2022Q4

REPORT INFORMATION
  Report Type: Spontaneous
  Country: US (occurrence: US)
  Receive Date: 20221011
  Receipt Date: 20221011
  Transmission Date: 20230112
  Serious: No
  Sender: FDA-Public Use
  Company Number: US-LUPIN PHARMACEUTICALS INC.-2022-11763

PATIENT
  Age: 54 Year
  Sex: Male

DRUGS (13)
  1. RIFABUTIN [Interacting]
     Active Substance: RIFABUTIN
     Indication: Tuberculosis
     Dosage: 300 MG, QD
     Route: 048
  2. DOLUTEGRAVIR [Interacting]
     Active Substance: DOLUTEGRAVIR
     Indication: HIV infection
     Dosage: 50 MG, QD
     Route: 065
  3. DOLUTEGRAVIR [Interacting]
     Active Substance: DOLUTEGRAVIR
     Dosage: 50 MG, BID  (DOLUTEGRAVIR WAS INCREASED TO 50MG TWICE A DAY)
     Route: 065
  4. RIFAMPIN [Concomitant]
     Active Substance: RIFAMPIN
     Indication: Tuberculosis
     Dosage: UNK (AS A PART OF RIFAMPICIN, LEVOFLOXACIN, ISONIAZID, PYRAZINAMIDE, CYCLOSERINE)
     Route: 065
  5. LEVOFLOXACIN [Concomitant]
     Active Substance: LEVOFLOXACIN
     Indication: Tuberculosis
     Dosage: UNK (AS A PART OF RIFAMPICIN, LEVOFLOXACIN, ISONIAZID, PYRAZINAMIDE, CYCLOSERINE)
     Route: 065
  6. ISONIAZID [Concomitant]
     Active Substance: ISONIAZID
     Indication: Tuberculosis
     Dosage: UNK (AS A PART OF RIFAMPICIN, LEVOFLOXACIN, ISONIAZID, PYRAZINAMIDE, CYCLOSERINE)
     Route: 048
  7. ISONIAZID [Concomitant]
     Active Substance: ISONIAZID
     Dosage: UNK (AS A PART OF RIFABUTIN, ISONIAZID, PYRAZINAMIDE, CYCLOSERINE)
     Route: 048
  8. PYRAZINAMIDE [Concomitant]
     Active Substance: PYRAZINAMIDE
     Indication: Tuberculosis
     Dosage: UNK (AS A PART OF RIFAMPICIN, LEVOFLOXACIN, ISONIAZID, PYRAZINAMIDE, CYCLOSERINE)
     Route: 048
  9. PYRAZINAMIDE [Concomitant]
     Active Substance: PYRAZINAMIDE
     Dosage: UNK (AS A PART OF RIFABUTIN, ISONIAZID, PYRAZINAMIDE, CYCLOSERINE)
     Route: 048
  10. CYCLOSERINE [Concomitant]
     Active Substance: CYCLOSERINE
     Indication: Tuberculosis
     Dosage: UNK (AS A PART OF RIFAMPICIN, LEVOFLOXACIN, ISONIAZID, PYRAZINAMIDE, CYCLOSERINE)
     Route: 048
  11. CYCLOSERINE [Concomitant]
     Active Substance: CYCLOSERINE
     Dosage: UNK (AS A PART OF RIFABUTIN, ISONIAZID, PYRAZINAMIDE, CYCLOSERINE)
     Route: 048
  12. EMTRICITABINE [Concomitant]
     Active Substance: EMTRICITABINE
     Indication: HIV infection
     Dosage: UNK
     Route: 065
  13. TENOFOVIR ALAFENAMIDE [Concomitant]
     Active Substance: TENOFOVIR ALAFENAMIDE
     Indication: HIV infection
     Dosage: UNK
     Route: 065

REACTIONS (2)
  - Drug interaction [Unknown]
  - Drug level decreased [Recovering/Resolving]
